FAERS Safety Report 9914774 (Version 2)
Quarter: 2014Q1

REPORT INFORMATION
  Report Type: Report from Study
  Country: US (occurrence: US)
  Receive Date: 20140220
  Receipt Date: 20140226
  Transmission Date: 20141002
  Serious: Yes (Hospitalization)
  Sender: FDA-Public Use
  Company Number: US-FRI-1000054339

PATIENT
  Age: 70 Year
  Sex: Female
  Weight: 51.3 kg

DRUGS (25)
  1. FOLIC ACID [Concomitant]
     Indication: ROUTINE HEALTH MAINTENANCE
     Dosage: 1 MG
     Route: 048
     Dates: start: 1993
  2. WARFARIN [Concomitant]
     Indication: THROMBOSIS
     Dosage: 6 MG
     Route: 048
     Dates: start: 2003
  3. DIGOXIN [Concomitant]
     Indication: TACHYCARDIA
     Dosage: 125 MG
     Route: 048
     Dates: start: 2006
  4. PROZAC [Concomitant]
     Indication: DEPRESSION
     Dosage: 10 MG
     Route: 048
     Dates: start: 2007
  5. KLOR-CON [Concomitant]
     Indication: HYPOKALAEMIA
     Dosage: 10 MEQ
     Route: 048
     Dates: start: 2006
  6. DILTIAZEM [Concomitant]
     Indication: ILL-DEFINED DISORDER
     Dosage: 180 MG
     Route: 048
     Dates: start: 2006
  7. DILANTIN [Concomitant]
     Indication: CONVULSION
     Dosage: 200 MG
     Route: 048
     Dates: start: 2011
  8. PRILOSEC [Concomitant]
     Indication: GASTROOESOPHAGEAL REFLUX DISEASE
     Dosage: 20 MG
     Route: 048
     Dates: start: 2011
  9. SPIRIVA [Concomitant]
     Indication: BRONCHITIS CHRONIC
     Dosage: 18 MCG
     Route: 055
     Dates: start: 20080319
  10. SPIRIVA [Concomitant]
     Indication: EMPHYSEMA
  11. SPIRIVA [Concomitant]
     Indication: CHRONIC OBSTRUCTIVE PULMONARY DISEASE
  12. REMICADE [Concomitant]
     Indication: RHEUMATOID ARTHRITIS
     Dosage: 19.0476 MG
     Route: 042
     Dates: start: 1998
  13. VITAMIN D [Concomitant]
     Indication: ROUTINE HEALTH MAINTENANCE
     Dosage: 714.2857 IU
     Route: 048
     Dates: start: 20130316
  14. LYRICA [Concomitant]
     Indication: RHEUMATOID ARTHRITIS
     Dosage: 75 MG
     Route: 048
     Dates: start: 20130105
  15. LYRICA [Concomitant]
     Dosage: 150 MG
     Route: 048
     Dates: start: 20130105
  16. XANAX [Concomitant]
     Indication: ANXIETY
     Dosage: 15 MG
     Route: 048
     Dates: start: 2007
  17. AMBIEN [Concomitant]
     Indication: INSOMNIA
     Dosage: 10 MG
     Route: 048
     Dates: start: 2007
  18. VICODIN [Concomitant]
     Indication: RHEUMATOID ARTHRITIS
     Dosage: 3000 MG
     Route: 048
     Dates: start: 1993
  19. VICODIN [Concomitant]
     Indication: PAIN
  20. OXYGEN [Concomitant]
     Indication: HYPOXIA
     Dosage: 2 L
     Route: 045
     Dates: start: 2003
  21. LORAZEPAM [Concomitant]
     Indication: ANXIETY
     Dosage: 1.0 MG
     Route: 048
     Dates: start: 20131006
  22. SUCRALFATE [Concomitant]
     Indication: PROPHYLAXIS
     Dosage: 2 MG
     Route: 048
     Dates: start: 20131006
  23. HYDROCODONE [Concomitant]
     Indication: PYREXIA
     Dosage: 15/650 MG
     Route: 048
     Dates: start: 20131006
  24. HYDROCODONE [Concomitant]
     Indication: PAIN
  25. ROFLUMILAST [Suspect]
     Indication: CHRONIC OBSTRUCTIVE PULMONARY DISEASE
     Dosage: 500 MCG
     Route: 048
     Dates: start: 20130501, end: 20131210

REACTIONS (3)
  - Pneumonia [Recovered/Resolved]
  - Empyema [Recovered/Resolved]
  - Foot fracture [Recovering/Resolving]
